FAERS Safety Report 6415417-3 (Version None)
Quarter: 2009Q4

REPORT INFORMATION
  Report Type: 
  Country: None (occurrence: None)
  Receive Date: 20091027
  Receipt Date: 20091016
  Transmission Date: 20100525
  Serious: No
  Sender: FDA-Public Use
  Company Number: US-JNJFOC-20091006330

PATIENT
  Sex: Female
  Weight: 122.47 kg

DRUGS (4)
  1. DURAGESIC-100 [Suspect]
     Indication: COMPLEX REGIONAL PAIN SYNDROME
     Dosage: NDC 50458-092-05
     Route: 062
     Dates: start: 20090920, end: 20091015
  2. TOPROL-XL [Concomitant]
     Indication: HYPERTENSION
     Route: 048
  3. LOTREL [Concomitant]
     Indication: HYPERTENSION
     Dosage: DOSE: 5 MG/20 MG ONCE A DAY
     Route: 048
  4. PREMARIN [Concomitant]
     Indication: HORMONE LEVEL ABNORMAL
     Route: 048

REACTIONS (9)
  - EYE IRRITATION [None]
  - EYE PAIN [None]
  - HEADACHE [None]
  - NAUSEA [None]
  - PRODUCT ADHESION ISSUE [None]
  - PRODUCT QUALITY ISSUE [None]
  - TREATMENT NONCOMPLIANCE [None]
  - VOMITING [None]
  - WRONG TECHNIQUE IN DRUG USAGE PROCESS [None]
